FAERS Safety Report 8830435 (Version 1)
Quarter: 2012Q4

REPORT INFORMATION
  Report Type: 
  Country: GB (occurrence: GB)
  Receive Date: 20121009
  Receipt Date: 20121009
  Transmission Date: 20130627
  Serious: Yes (Other)
  Sender: FDA-Public Use
  Company Number: PHHY2012GB081668

PATIENT
  Sex: Female

DRUGS (2)
  1. NIFEDIPINE [Suspect]
     Route: 048
  2. FOLIC ACID [Suspect]

REACTIONS (6)
  - Oligohydramnios [Unknown]
  - Pre-eclampsia [Unknown]
  - Placental disorder [Unknown]
  - Premature delivery [Unknown]
  - Haemoglobin decreased [Unknown]
  - Maternal exposure during pregnancy [Unknown]
